FAERS Safety Report 11371158 (Version 2)
Quarter: 2015Q3

REPORT INFORMATION
  Report Type: Spontaneous
  Country: US (occurrence: US)
  Receive Date: 20150812
  Receipt Date: 20150904
  Transmission Date: 20151125
  Serious: No
  Sender: FDA-Public Use
  Company Number: US-PFIZER INC-2015263185

PATIENT
  Age: 59 Year
  Sex: Female
  Weight: 66 kg

DRUGS (2)
  1. LYRICA [Suspect]
     Active Substance: PREGABALIN
     Indication: HYPOAESTHESIA
     Dosage: 300 MG, DAILY (150MG CAPSULE, TAKE 2 EVERY NIGHT AT BEDTIME)
     Route: 048
  2. LYRICA [Suspect]
     Active Substance: PREGABALIN
     Indication: NEURALGIA

REACTIONS (6)
  - Feeling of despair [Recovering/Resolving]
  - Memory impairment [Unknown]
  - Syncope [Unknown]
  - Blood pressure abnormal [Unknown]
  - Abnormal behaviour [Unknown]
  - Dizziness [Unknown]
